FAERS Safety Report 13901582 (Version 1)
Quarter: 2017Q3

REPORT INFORMATION
  Report Type: Spontaneous
  Country: MX (occurrence: MX)
  Receive Date: 20170824
  Receipt Date: 20170824
  Transmission Date: 20171127
  Serious: Yes (Other)
  Sender: FDA-Public Use
  Company Number: MX-009507513-1708MEX009590

PATIENT
  Sex: Female

DRUGS (1)
  1. EMEND (FOSAPREPITANT DIMEGLUMINE) [Suspect]
     Active Substance: FOSAPREPITANT DIMEGLUMINE
     Dosage: 150 MG, UNK

REACTIONS (6)
  - Vomiting [Unknown]
  - Hypoglycaemia [Unknown]
  - Abdominal pain [Unknown]
  - Anaphylactic shock [Unknown]
  - Hypertension [Unknown]
  - Hyperhidrosis [Unknown]
